FAERS Safety Report 7703412-3 (Version None)
Quarter: 2011Q3

REPORT INFORMATION
  Report Type: 
  Country: None (occurrence: None)
  Receive Date: 20110823
  Receipt Date: 20110823
  Transmission Date: 20111222
  Serious: Yes (Hospitalization)
  Sender: FDA-Public Use
  Company Number: None

PATIENT
  Sex: Male
  Weight: 96.2 kg

DRUGS (11)
  1. XOLAIR [Suspect]
     Indication: ASTHMA
     Dosage: 225MG
     Route: 058
     Dates: start: 20101103, end: 20110720
  2. XOPENEX [Concomitant]
  3. SINGULAIR [Concomitant]
  4. NASONEX [Concomitant]
  5. MINOCYCLINE HCL [Concomitant]
  6. ZYRTEC [Concomitant]
  7. ALLOPURINOL [Concomitant]
  8. CLARITIN [Concomitant]
  9. OMEPRAZOLE [Concomitant]
  10. CARTIA XT [Concomitant]
  11. SYMBICORT [Concomitant]

REACTIONS (1)
  - PULMONARY EMBOLISM [None]
